FAERS Safety Report 5427137-2 (Version None)
Quarter: 2007Q3

REPORT INFORMATION
  Report Type: 
  Country: None (occurrence: None)
  Receive Date: 20070828
  Receipt Date: 20070823
  Transmission Date: 20080115
  Serious: Yes (Life-Threatening, Hospitalization)
  Sender: FDA-Public Use
  Company Number: PHBS2007PT14027

PATIENT
  Age: 39 Year
  Sex: Male

DRUGS (3)
  1. TIZANIDINE HCL [Suspect]
     Indication: BACK PAIN
     Dates: start: 20070731
  2. MISOPROSTOL [Suspect]
  3. DICLOFENAC SODIUM [Suspect]
     Indication: BACK PAIN
     Route: 048
     Dates: start: 20070731

REACTIONS (8)
  - ABDOMINAL PAIN [None]
  - DRUG INTERACTION [None]
  - EYELID OEDEMA [None]
  - FACE OEDEMA [None]
  - HEADACHE [None]
  - LIP OEDEMA [None]
  - OEDEMA PERIPHERAL [None]
  - RASH [None]
